FAERS Safety Report 17293690 (Version 1)
Quarter: 2020Q1

REPORT INFORMATION
  Report Type: Spontaneous
  Country: US (occurrence: US)
  Receive Date: 20200102
  Receipt Date: 20200102
  Transmission Date: 20200409
  Serious: No
  Sender: FDA-Public Use
  Company Number: None

PATIENT
  Sex: Female

DRUGS (1)
  1. CAPECITABINE 500MG [Suspect]
     Active Substance: CAPECITABINE
     Indication: LIVER DISORDER
     Dosage: ?          OTHER DOSE:1000MG AM, 1500 PM;?
     Route: 048
     Dates: start: 20191018

REACTIONS (2)
  - Dry skin [None]
  - Skin fissures [None]
